FAERS Safety Report 9403726 (Version 1)
Quarter: 2013Q3

REPORT INFORMATION
  Report Type: Spontaneous
  Country: US (occurrence: None)
  Receive Date: 20130715
  Receipt Date: 20130715
  Transmission Date: 20140515
  Serious: No
  Sender: FDA-Public Use
  Company Number: None

PATIENT
  Age: 56 Year
  Sex: Female
  Weight: 74.84 kg

DRUGS (5)
  1. ZOLPIDEM [Suspect]
     Indication: INSOMNIA
     Dosage: 1 TABLET
     Route: 048
     Dates: start: 20130605, end: 20130712
  2. PREMPRO [Concomitant]
  3. VITAMIN B12 [Concomitant]
  4. VIT D [Concomitant]
  5. PEPCID COMPLETE [Concomitant]

REACTIONS (2)
  - Drug ineffective [None]
  - Product substitution issue [None]
